FAERS Safety Report 8375497-5 (Version None)
Quarter: 2012Q1

REPORT INFORMATION
  Report Type: 
  Country: None (occurrence: None)
  Receive Date: 20120323
  Receipt Date: 20110720
  Transmission Date: 20120608
  Serious: Yes (Other)
  Sender: FDA-Public Use
  Company Number: 163-21880-11022637

PATIENT
  Age: 69 Year
  Sex: Female
  Weight: 58.4687 kg

DRUGS (15)
  1. MULTIVITAMIN [Concomitant]
  2. MEVACOR [Concomitant]
  3. PRILOSEC [Concomitant]
  4. TRAMADOL HCL [Concomitant]
  5. LANTUS [Concomitant]
  6. ZOMETA (ZOLEDRONICE ACID) [Concomitant]
  7. ASPIRIN [Concomitant]
  8. REVLIMID [Suspect]
     Indication: MULTIPLE MYELOMA
     Dosage: 10 MG, 1 IN 1 D, PO
     Route: 048
     Dates: start: 20100701
  9. LOPRESSOR [Suspect]
     Indication: PRODUCT USED FOR UNKNOWN INDICATION
     Dosage: 50 MG, BID
  10. LISINOPRIL [Concomitant]
  11. IMODIUM ADVANCED (IMODIUM ADVANCED) [Concomitant]
  12. LEVOTHROID [Concomitant]
  13. ZOLOFT [Concomitant]
  14. COBAL (PEMOLINE) [Concomitant]
  15. CALTRATE +D [Concomitant]

REACTIONS (3)
  - HYPOTENSION [None]
  - HEARING IMPAIRED [None]
  - PANCYTOPENIA [None]
